FAERS Safety Report 17140550 (Version 4)
Quarter: 2020Q1

REPORT INFORMATION
  Report Type: Report from Study
  Country: DE (occurrence: DE)
  Receive Date: 20191211
  Receipt Date: 20200130
  Transmission Date: 20200409
  Serious: Yes (Hospitalization, Other)
  Sender: FDA-Public Use
  Company Number: NVSC2019DE047112

PATIENT
  Sex: Female
  Weight: 49 kg

DRUGS (2)
  1. KISQALI [Suspect]
     Active Substance: RIBOCICLIB
     Indication: BREAST CANCER METASTATIC
     Dosage: 600 MG, QD
     Route: 048
     Dates: start: 20190905
  2. FULVESTRANT. [Suspect]
     Active Substance: FULVESTRANT
     Indication: BREAST CANCER METASTATIC
     Dosage: 500 MG (DAILY DOSE), QMO
     Route: 030
     Dates: start: 20190905

REACTIONS (12)
  - General physical health deterioration [Recovered/Resolved]
  - Right atrial dilatation [Recovered/Resolved with Sequelae]
  - Supraventricular tachycardia [Unknown]
  - Sinus arrhythmia [Recovered/Resolved with Sequelae]
  - Tricuspid valve incompetence [Recovered/Resolved with Sequelae]
  - Hypoaesthesia oral [Not Recovered/Not Resolved]
  - Haemangioma of liver [Unknown]
  - Supraventricular extrasystoles [Unknown]
  - Pleural effusion [Unknown]
  - Pulmonary pain [Not Recovered/Not Resolved]
  - Extrasystoles [Recovered/Resolved with Sequelae]
  - Left ventricular dysfunction [Recovered/Resolved with Sequelae]

NARRATIVE: CASE EVENT DATE: 20191118
